FAERS Safety Report 5656967-7 (Version None)
Quarter: 2008Q1

REPORT INFORMATION
  Report Type: 
  Country: None (occurrence: None)
  Receive Date: 20080310
  Receipt Date: 20080306
  Transmission Date: 20080703
  Serious: Yes (Hospitalization)
  Sender: FDA-Public Use
  Company Number: B0458252A

PATIENT
  Age: 53 Year
  Sex: Female
  Weight: 59 kg

DRUGS (17)
  1. ALKERAN [Suspect]
     Indication: STEM CELL TRANSPLANT
     Dosage: 300MG PER DAY
     Route: 042
     Dates: start: 20061004, end: 20061004
  2. NEUTROGIN [Concomitant]
     Dates: start: 20061007, end: 20061018
  3. KYTRIL [Concomitant]
     Dosage: 3ML PER DAY
     Route: 042
     Dates: start: 20061004, end: 20061004
  4. PRIMPERAN INJ [Concomitant]
     Dates: start: 20061005, end: 20061009
  5. HYDROCORTONE [Concomitant]
     Dosage: 100MG PER DAY
     Route: 042
     Dates: start: 20061006, end: 20061025
  6. TIENAM [Concomitant]
     Dosage: 2G PER DAY
     Dates: start: 20061014, end: 20061018
  7. VANCOMYCIN [Concomitant]
     Dosage: 1.5G PER DAY
     Route: 042
     Dates: start: 20061014, end: 20061018
  8. DIFLUCAN [Concomitant]
     Dosage: 200MG PER DAY
     Route: 048
     Dates: start: 20061004, end: 20061019
  9. CIPROFLOXACIN [Concomitant]
     Dosage: 300MG PER DAY
     Route: 048
     Dates: start: 20061004, end: 20061011
  10. ALOSITOL [Concomitant]
     Dosage: 300MG PER DAY
     Route: 048
     Dates: start: 20061004, end: 20061011
  11. MUCOSTA [Concomitant]
     Dosage: 300MG PER DAY
     Route: 048
     Dates: start: 20061004
  12. DEPAS [Concomitant]
     Dosage: .5MG PER DAY
     Route: 048
     Dates: start: 20061009, end: 20061011
  13. ACETAMINOPHEN [Concomitant]
     Dosage: .3G PER DAY
     Route: 048
     Dates: start: 20061026, end: 20061026
  14. NAIXAN [Concomitant]
     Dosage: 600MG PER DAY
     Route: 048
     Dates: start: 20061027, end: 20061031
  15. VOLTAREN [Concomitant]
     Dosage: 75MG PER DAY
     Route: 048
     Dates: start: 20061030, end: 20061120
  16. CLARITHROMYCIN [Concomitant]
     Dosage: 300MG PER DAY
     Route: 048
     Dates: start: 20061030
  17. CRAVIT [Concomitant]
     Dosage: 300MG PER DAY
     Route: 048
     Dates: start: 20061111, end: 20061115

REACTIONS (6)
  - ALANINE AMINOTRANSFERASE INCREASED [None]
  - ASPARTATE AMINOTRANSFERASE INCREASED [None]
  - CELLULITIS [None]
  - HERPES ZOSTER [None]
  - HISTIOCYTOSIS HAEMATOPHAGIC [None]
  - PYREXIA [None]
